FAERS Safety Report 5243178-2 (Version None)
Quarter: 2007Q1

REPORT INFORMATION
  Report Type: 
  Country: None (occurrence: None)
  Receive Date: 20070221
  Receipt Date: 20070212
  Transmission Date: 20070707
  Serious: Yes (Other)
  Sender: FDA-Public Use
  Company Number: FR-PFIZER INC-2007011464

PATIENT
  Age: 73 Year
  Sex: Male

DRUGS (3)
  1. TAHOR [Suspect]
     Indication: DRUG USE FOR UNKNOWN INDICATION
  2. ACEBUTOLOL [Concomitant]
  3. ASPIRIN [Concomitant]

REACTIONS (4)
  - AMYOTROPHY [None]
  - CYTOLYTIC HEPATITIS [None]
  - INFLUENZA LIKE ILLNESS [None]
  - TRANSAMINASES INCREASED [None]
